FAERS Safety Report 5678315-9 (Version None)
Quarter: 2008Q1

REPORT INFORMATION
  Report Type: 
  Country: None (occurrence: None)
  Receive Date: 20080320
  Receipt Date: 20080312
  Transmission Date: 20080703
  Serious: Yes (Hospitalization)
  Sender: FDA-Public Use
  Company Number: T01-USA-01591-01

PATIENT
  Age: 77 Year
  Sex: Female

DRUGS (7)
  1. MEMANTINE HCL [Suspect]
     Indication: GLAUCOMA
     Dosage: 10 MG QD; PO
     Route: 048
     Dates: start: 20000724, end: 20010723
  2. CALCIUM CARBONATE [Concomitant]
  3. ESTROGENS CONJUGATED [Concomitant]
  4. CALCITONIN SALMON [Concomitant]
  5. BUFFERIN [Concomitant]
  6. MULTIPLE VITAMIN [Concomitant]
  7. FELODIPINE [Concomitant]

REACTIONS (6)
  - DIZZINESS [None]
  - FALL [None]
  - FEMUR FRACTURE [None]
  - HYPERTENSION [None]
  - SYNCOPE [None]
  - TRAUMATIC FRACTURE [None]
